FAERS Safety Report 8903105 (Version 2)
Quarter: 2014Q2

REPORT INFORMATION
  Report Type: Spontaneous
  Country: US (occurrence: US)
  Receive Date: 20121113
  Receipt Date: 20131018
  Transmission Date: 20141212
  Serious: Yes (Hospitalization)
  Sender: FDA-Public Use
  Company Number: US-PFIZER INC-2012279622

PATIENT
  Age: 63 Year
  Sex: Male

DRUGS (2)
  1. LIDOCAINE HCL [Suspect]
     Dosage: 1 ML OF 1%, UNK
     Route: 008
  2. BETAMETHASONE [Suspect]
     Dosage: 6MG/ML, UNK
     Route: 008

REACTIONS (4)
  - Spinal cord infarction [Unknown]
  - Sensory loss [Unknown]
  - Motor dysfunction [Unknown]
  - Presyncope [Unknown]
